FAERS Safety Report 8532907 (Version 2)
Quarter: 2013Q2

REPORT INFORMATION
  Report Type: Spontaneous
  Country: FR (occurrence: FR)
  Receive Date: 20120427
  Receipt Date: 20130508
  Transmission Date: 20140414
  Serious: Yes (Life-Threatening, Hospitalization)
  Sender: FDA-Public Use
  Company Number: FR-BIOGENIDEC-2012BI013844

PATIENT
  Age: 38 Year
  Sex: Female

DRUGS (5)
  1. TYSABRI [Suspect]
     Indication: MULTIPLE SCLEROSIS
     Route: 042
     Dates: start: 200910
  2. LYRICA [Concomitant]
  3. LIORESAL [Concomitant]
  4. LAROXYL [Concomitant]
  5. DIANE [Concomitant]
     Indication: ORAL CONTRACEPTION

REACTIONS (1)
  - Pulmonary embolism [Not Recovered/Not Resolved]
